FAERS Safety Report 8174730-2 (Version None)
Quarter: 2012Q1

REPORT INFORMATION
  Report Type: 
  Country: None (occurrence: None)
  Receive Date: 20120229
  Receipt Date: 20120222
  Transmission Date: 20120608
  Serious: Yes (Other)
  Sender: FDA-Public Use
  Company Number: GB-VIIV HEALTHCARE LIMITED-B0782185A

PATIENT
  Sex: Female

DRUGS (3)
  1. TRUVADA [Concomitant]
  2. RITONAVIR [Concomitant]
  3. TELZIR [Suspect]
     Indication: HIV INFECTION
     Dosage: 1400MG PER DAY
     Route: 065

REACTIONS (1)
  - METHAEMOGLOBINAEMIA [None]
